FAERS Safety Report 6611245-4 (Version None)
Quarter: 2010Q1

REPORT INFORMATION
  Report Type: 
  Country: None (occurrence: None)
  Receive Date: 20100301
  Receipt Date: 20100301
  Transmission Date: 20100710
  Serious: Yes (Other)
  Sender: FDA-Public Use
  Company Number: None

PATIENT
  Age: 77 Year
  Sex: Male
  Weight: 95.2554 kg

DRUGS (2)
  1. WARFARIN SODIUM [Suspect]
     Indication: HEART RATE IRREGULAR
     Dosage: 6 MG DAILY PO
     Route: 048
     Dates: start: 20080101, end: 20100101
  2. WARFARIN SODIUM [Suspect]
     Dosage: WAS 6 MG, NOW 7 MG DAILY PO
     Route: 048
     Dates: start: 20100101, end: 20100226

REACTIONS (3)
  - DRUG EFFECT DECREASED [None]
  - DRUG LEVEL BELOW THERAPEUTIC [None]
  - PRODUCT SUBSTITUTION ISSUE [None]
